FAERS Safety Report 11418737 (Version 1)
Quarter: 2015Q3

REPORT INFORMATION
  Report Type: Spontaneous
  Country: BR (occurrence: BR)
  Receive Date: 20150826
  Receipt Date: 20150826
  Transmission Date: 20151125
  Serious: Yes (Hospitalization, Other)
  Sender: FDA-Public Use
  Company Number: BR-PFIZER INC-2015277295

PATIENT
  Age: 76 Year
  Sex: Male

DRUGS (4)
  1. ELIQUIS [Concomitant]
     Active Substance: APIXABAN
     Indication: BLOOD VISCOSITY INCREASED
     Dosage: 5 MG (1 TABLET), 2X/DAY
     Dates: start: 20150717
  2. CONCOR [Concomitant]
     Active Substance: BISOPROLOL FUMARATE
     Dosage: 5 MG (1 TABLET), 2X/DAY
     Dates: start: 201506
  3. DILACORON [Concomitant]
     Dosage: 80 MG, 3X/DAY
     Dates: start: 201506
  4. CITALOR [Suspect]
     Active Substance: ATORVASTATIN
     Indication: CORONARY ARTERY DISEASE
     Dosage: 40 MG (HALF TABLET), DAILY
     Route: 048
     Dates: start: 2012

REACTIONS (3)
  - Intervertebral disc protrusion [Unknown]
  - Heart rate abnormal [Unknown]
  - Pneumonia [Unknown]

NARRATIVE: CASE EVENT DATE: 2015
